FAERS Safety Report 8918276 (Version 3)
Quarter: 2012Q4

REPORT INFORMATION
  Report Type: 
  Country: GR (occurrence: GR)
  Receive Date: 20121120
  Receipt Date: 20121130
  Transmission Date: 20130627
  Serious: Yes (Other)
  Sender: FDA-Public Use
  Company Number: GR-JNJFOC-20121107189

PATIENT
  Sex: Female

DRUGS (10)
  1. DOXORUBICIN [Suspect]
     Indication: CERVIX CARCINOMA RECURRENT
     Route: 042
  2. DOXORUBICIN [Suspect]
     Indication: CERVIX CARCINOMA RECURRENT
     Route: 065
  3. MITOMYCIN C [Suspect]
     Indication: CERVIX CARCINOMA RECURRENT
     Route: 042
  4. CISPLATIN [Suspect]
     Indication: CERVIX CARCINOMA RECURRENT
     Route: 042
  5. HEPARIN [Concomitant]
     Route: 040
  6. HEPARIN [Concomitant]
     Route: 040
  7. ONDANSETRON [Concomitant]
     Indication: ANTIEMETIC SUPPORTIVE CARE
     Route: 065
  8. RANITIDINE [Concomitant]
     Indication: ANTIEMETIC SUPPORTIVE CARE
     Route: 065
  9. UNSPECIFIED LOW-MOLECULAR WEIGHT HEPARIN [Concomitant]
     Route: 058
  10. GENERAL ANESTHETIC [Concomitant]
     Indication: GENERAL ANAESTHESIA
     Route: 065

REACTIONS (2)
  - Enterocutaneous fistula [Unknown]
  - Off label use [Unknown]
